FAERS Safety Report 17814076 (Version 2)
Quarter: 2020Q2

REPORT INFORMATION
  Report Type: Report from Study
  Country: US (occurrence: US)
  Receive Date: 20200521
  Receipt Date: 20200602
  Transmission Date: 20200714
  Serious: Yes (Hospitalization, Other)
  Sender: FDA-Public Use
  Company Number: US-ACTELION-A-NJ2020-202466

PATIENT
  Age: 66 Year
  Sex: Female
  Weight: 92.97 kg

DRUGS (6)
  1. AMLODIPINE [Concomitant]
     Active Substance: AMLODIPINE BESYLATE
  2. ROSUVASTATIN. [Concomitant]
     Active Substance: ROSUVASTATIN
  3. TADALAFIL. [Suspect]
     Active Substance: TADALAFIL
     Indication: PRODUCT USED FOR UNKNOWN INDICATION
     Route: 065
  4. FUROSEMIDE. [Concomitant]
     Active Substance: FUROSEMIDE
  5. OPSUMIT [Suspect]
     Active Substance: MACITENTAN
     Indication: PULMONARY ARTERIAL HYPERTENSION
     Dosage: 10 MG, QD
     Route: 048
     Dates: end: 20200508
  6. SPIRONOLACTONE. [Concomitant]
     Active Substance: SPIRONOLACTONE

REACTIONS (13)
  - Pneumonia [Unknown]
  - Pulmonary oedema [Not Recovered/Not Resolved]
  - Asthenia [Not Recovered/Not Resolved]
  - Fatigue [Not Recovered/Not Resolved]
  - Cardiac failure [Unknown]
  - Diarrhoea [Unknown]
  - Pulmonary hypertension [Unknown]
  - Fluid retention [Unknown]
  - Dizziness [Not Recovered/Not Resolved]
  - Nasal congestion [Unknown]
  - Muscle injury [Unknown]
  - Pain in extremity [Unknown]
  - Headache [Unknown]

NARRATIVE: CASE EVENT DATE: 202005
